FAERS Safety Report 10208694 (Version 1)
Quarter: 2014Q2

REPORT INFORMATION
  Report Type: Spontaneous
  Country: US (occurrence: US)
  Receive Date: 20140530
  Receipt Date: 20140530
  Transmission Date: 20141212
  Serious: Yes (Death)
  Sender: FDA-Public Use
  Company Number: US-IAC KOREA XML-USA-2014-0113715

PATIENT
  Age: 40 Year
  Sex: Female

DRUGS (5)
  1. MORPHINE SULFATE (SIMILAR TO NDA 19-516) [Suspect]
     Indication: BACK PAIN
     Dosage: UNKNOWN
     Route: 048
     Dates: start: 20100908
  2. NORCO [Suspect]
     Indication: BACK PAIN
     Dosage: UNKNOWN
     Route: 048
  3. SOMA [Suspect]
     Indication: BACK PAIN
     Dosage: UNKNOWN
     Route: 048
  4. XANAX [Suspect]
     Indication: ANXIETY
     Dosage: UNKNOWN
     Route: 048
  5. XANAX [Suspect]
     Indication: INSOMNIA

REACTIONS (2)
  - Overdose [Fatal]
  - Drug screen negative [Unknown]
